FAERS Safety Report 7237328-6 (Version None)
Quarter: 2011Q1

REPORT INFORMATION
  Report Type: 
  Country: None (occurrence: None)
  Receive Date: 20110111
  Receipt Date: 20101230
  Transmission Date: 20110831
  Serious: Yes (Hospitalization)
  Sender: FDA-Public Use
  Company Number: 2010AP002703

PATIENT
  Sex: Male

DRUGS (8)
  1. TAMSULOSIN HCL [Concomitant]
  2. KEPPRA [Suspect]
     Indication: PRODUCT USED FOR UNKNOWN INDICATION
     Dosage: 250 MG;BID ; 500 MG;BID ; 1000 MG;BID ; 1000 MG;QD
  3. SOLIFENACIN (SOLIFENACIN) [Concomitant]
  4. LAMOTRIGINE [Suspect]
     Indication: PRODUCT USED FOR UNKNOWN INDICATION
  5. DEXAMETHASONE [Concomitant]
  6. OMEPRAZOLE [Concomitant]
  7. DIAZEPAM [Concomitant]
  8. LYRICA [Suspect]
     Indication: PRODUCT USED FOR UNKNOWN INDICATION
     Dosage: 50 MG;TID

REACTIONS (6)
  - FEELING DRUNK [None]
  - ABNORMAL DREAMS [None]
  - VISUAL IMPAIRMENT [None]
  - CONVULSION [None]
  - DRUG DISPENSING ERROR [None]
  - SYNCOPE [None]
